FAERS Safety Report 25343228 (Version 1)
Quarter: 2025Q2

REPORT INFORMATION
  Report Type: Spontaneous
  Country: CA (occurrence: CA)
  Receive Date: 20250521
  Receipt Date: 20250521
  Transmission Date: 20250717
  Serious: Yes (Death, Other)
  Sender: MYLAN
  Company Number: CA-MYLANLABS-2025M1042850

PATIENT
  Age: 43 Year
  Sex: Male

DRUGS (24)
  1. VENLAFAXINE [Suspect]
     Active Substance: VENLAFAXINE HYDROCHLORIDE
     Indication: Product used for unknown indication
  2. VENLAFAXINE [Suspect]
     Active Substance: VENLAFAXINE HYDROCHLORIDE
     Route: 065
  3. VENLAFAXINE [Suspect]
     Active Substance: VENLAFAXINE HYDROCHLORIDE
     Route: 065
  4. VENLAFAXINE [Suspect]
     Active Substance: VENLAFAXINE HYDROCHLORIDE
  5. AMPHETAMINE [Suspect]
     Active Substance: AMPHETAMINE
     Indication: Product used for unknown indication
  6. AMPHETAMINE [Suspect]
     Active Substance: AMPHETAMINE
     Route: 065
  7. AMPHETAMINE [Suspect]
     Active Substance: AMPHETAMINE
     Route: 065
  8. AMPHETAMINE [Suspect]
     Active Substance: AMPHETAMINE
  9. CAFFEINE [Suspect]
     Active Substance: CAFFEINE
     Indication: Product used for unknown indication
  10. CAFFEINE [Suspect]
     Active Substance: CAFFEINE
     Route: 065
  11. CAFFEINE [Suspect]
     Active Substance: CAFFEINE
     Route: 065
  12. CAFFEINE [Suspect]
     Active Substance: CAFFEINE
  13. DIPHENHYDRAMINE [Suspect]
     Active Substance: DIPHENHYDRAMINE
     Indication: Product used for unknown indication
  14. DIPHENHYDRAMINE [Suspect]
     Active Substance: DIPHENHYDRAMINE
     Route: 065
  15. DIPHENHYDRAMINE [Suspect]
     Active Substance: DIPHENHYDRAMINE
     Route: 065
  16. DIPHENHYDRAMINE [Suspect]
     Active Substance: DIPHENHYDRAMINE
  17. FENTANYL [Suspect]
     Active Substance: FENTANYL
     Indication: Product used for unknown indication
  18. FENTANYL [Suspect]
     Active Substance: FENTANYL
     Route: 065
  19. FENTANYL [Suspect]
     Active Substance: FENTANYL
     Route: 065
  20. FENTANYL [Suspect]
     Active Substance: FENTANYL
  21. METHAMPHETAMINE [Suspect]
     Active Substance: METHAMPHETAMINE
     Indication: Product used for unknown indication
  22. METHAMPHETAMINE [Suspect]
     Active Substance: METHAMPHETAMINE
     Route: 065
  23. METHAMPHETAMINE [Suspect]
     Active Substance: METHAMPHETAMINE
     Route: 065
  24. METHAMPHETAMINE [Suspect]
     Active Substance: METHAMPHETAMINE

REACTIONS (2)
  - Alcohol poisoning [Fatal]
  - Toxicity to various agents [Fatal]
